FAERS Safety Report 20911597 (Version 1)
Quarter: 2022Q2

REPORT INFORMATION
  Report Type: Spontaneous
  Country: US (occurrence: US)
  Receive Date: 20220603
  Receipt Date: 20220603
  Transmission Date: 20220721
  Serious: Yes (Other)
  Sender: FDA-Public Use
  Company Number: US-MYLANLABS-2022M1041999

PATIENT
  Age: 1 Year
  Sex: Female

DRUGS (4)
  1. PAMIDRONATE [Suspect]
     Active Substance: PAMIDRONATE DISODIUM
     Indication: Gorham^s disease
     Dosage: UNK
     Route: 065
     Dates: start: 2014
  2. ZOLEDRONIC ACID [Suspect]
     Active Substance: ZOLEDRONIC ACID
     Indication: Gorham^s disease
     Dosage: UNK
     Route: 065
  3. SIROLIMUS [Suspect]
     Active Substance: SIROLIMUS
     Indication: Gorham^s disease
     Dosage: UNK
     Route: 065
     Dates: start: 2014
  4. VINCRISTINE [Concomitant]
     Active Substance: VINCRISTINE
     Indication: Gorham^s disease
     Dosage: UNK
     Route: 065

REACTIONS (3)
  - Drug ineffective [Unknown]
  - Blood parathyroid hormone increased [Recovered/Resolved]
  - Off label use [Unknown]
